FAERS Safety Report 5347087-X (Version None)
Quarter: 2007Q2

REPORT INFORMATION
  Report Type: 
  Country: None (occurrence: None)
  Receive Date: 20070604
  Receipt Date: 20070524
  Transmission Date: 20071010
  Serious: Yes (Other)
  Sender: FDA-Public Use
  Company Number: 2007AP000553

PATIENT
  Age: 7 Year
  Sex: Male

DRUGS (2)
  1. LISINOPRIL [Suspect]
     Indication: PROTEINURIA
     Dosage: 0.08 MG/KG; AM;
     Dates: start: 20040101, end: 20040101
  2. LOSARTAN [Suspect]
     Indication: PROTEINURIA
     Dosage: 0.8 MG/KG; PM;
     Dates: start: 20040101, end: 20040101

REACTIONS (12)
  - FATIGUE [None]
  - HYPOTENSION [None]
  - HYPOVOLAEMIA [None]
  - NAUSEA [None]
  - NO THERAPEUTIC RESPONSE [None]
  - PHARMACEUTICAL PRODUCT COMPLAINT [None]
  - RENAL FAILURE ACUTE [None]
  - RENAL IMPAIRMENT [None]
  - RENAL TUBULAR NECROSIS [None]
  - SPECIFIC GRAVITY URINE DECREASED [None]
  - SUPRAPUBIC PAIN [None]
  - URINE PROTEIN/CREATININE RATIO INCREASED [None]
